FAERS Safety Report 5482320-5 (Version None)
Quarter: 2007Q4

REPORT INFORMATION
  Report Type: 
  Country: None (occurrence: None)
  Receive Date: 20071011
  Receipt Date: 20071004
  Transmission Date: 20080405
  Serious: Yes (Hospitalization)
  Sender: FDA-Public Use
  Company Number: FR-WYE-H00521707

PATIENT
  Sex: Male

DRUGS (9)
  1. CORDARONE [Suspect]
     Route: 048
  2. ATARAX [Concomitant]
     Route: 048
  3. OGAST [Suspect]
     Route: 048
  4. LOVENOX [Suspect]
     Indication: PROPHYLAXIS
     Route: 058
     Dates: start: 20070614, end: 20070625
  5. ORBENINE [Suspect]
     Indication: ERYSIPELAS
     Route: 048
     Dates: start: 20070620, end: 20070711
  6. OFLOCET [Suspect]
     Indication: ERYSIPELAS
     Dosage: UNKNOWN
     Route: 048
     Dates: start: 20070614, end: 20070712
  7. LASIX [Concomitant]
     Dosage: 40 MG
     Route: 048
     Dates: start: 20070614
  8. PLAVIX [Suspect]
     Route: 048
     Dates: end: 20070627
  9. AMLOR [Concomitant]
     Route: 048

REACTIONS (4)
  - ERYSIPELAS [None]
  - HAEMATOMA [None]
  - HYPOTHYROIDISM [None]
  - MUSCLE HAEMORRHAGE [None]
